FAERS Safety Report 18793430 (Version 1)
Quarter: 2021Q1

REPORT INFORMATION
  Report Type: Spontaneous
  Country: US (occurrence: US)
  Receive Date: 20210127
  Receipt Date: 20210127
  Transmission Date: 20210419
  Serious: No
  Sender: FDA-Public Use
  Company Number: US-BAYER-2021-029395

PATIENT
  Age: 55 Year
  Sex: Female

DRUGS (1)
  1. BETASERON [Suspect]
     Active Substance: INTERFERON BETA-1B
     Indication: MULTIPLE SCLEROSIS
     Dosage: 0.3 MG
     Route: 058
     Dates: start: 2002

REACTIONS (6)
  - Injection site pain [Not Recovered/Not Resolved]
  - Gastric disorder [None]
  - Injection site mass [None]
  - JC polyomavirus test positive [None]
  - Mobility decreased [None]
  - Injection site swelling [Not Recovered/Not Resolved]
